FAERS Safety Report 8997816 (Version 1)
Quarter: 2013Q1

REPORT INFORMATION
  Report Type: Spontaneous
  Country: US (occurrence: US)
  Receive Date: 20130104
  Receipt Date: 20130104
  Transmission Date: 20140127
  Serious: Yes (Hospitalization)
  Sender: FDA-Public Use
  Company Number: US-GLAXOSMITHKLINE-A0910435A

PATIENT
  Age: 57 Year
  Sex: Male

DRUGS (1)
  1. AVANDIA [Suspect]
     Indication: DIABETES MELLITUS
     Dosage: 8MG PER DAY
     Route: 048
     Dates: end: 2008

REACTIONS (5)
  - Hypercoagulation [Not Recovered/Not Resolved]
  - Cardiac failure congestive [Unknown]
  - Gait disturbance [Unknown]
  - Fluid retention [Unknown]
  - Vascular graft [Unknown]
